FAERS Safety Report 21423880 (Version 1)
Quarter: 2022Q4

REPORT INFORMATION
  Report Type: Spontaneous
  Country: PL (occurrence: PL)
  Receive Date: 20221007
  Receipt Date: 20221007
  Transmission Date: 20230112
  Serious: Yes (Hospitalization, Other)
  Sender: FDA-Public Use
  Company Number: PL-TEVA-822904ISR

PATIENT
  Age: 32 Year
  Sex: Male

DRUGS (12)
  1. DOXORUBICIN [Suspect]
     Active Substance: DOXORUBICIN
     Indication: Chemotherapy
     Dosage: 4 CYCLES - ABVD SCHEME
     Route: 065
  2. IFOSFAMIDE [Suspect]
     Active Substance: IFOSFAMIDE
     Indication: Chemotherapy
     Dosage: 3 CYCLES - ICE SCHEME
     Route: 065
  3. IFOSFAMIDE [Suspect]
     Active Substance: IFOSFAMIDE
     Dosage: 4 CYCLES - IGEV SCHEME
     Route: 065
     Dates: start: 201512
  4. VINBLASTINE [Suspect]
     Active Substance: VINBLASTINE
     Indication: Chemotherapy
     Dosage: 4 CYCLES - ABVD SCHEME
     Route: 065
  5. BLEOMYCIN [Suspect]
     Active Substance: BLEOMYCIN SULFATE
     Indication: Chemotherapy
     Dosage: 4 CYCLES - ABVD SCHEME
     Route: 065
  6. GEMCITABINE [Suspect]
     Active Substance: GEMCITABINE
     Indication: Chemotherapy
     Dosage: 4 CYCLES - IGEV SCHEME
     Route: 065
     Dates: start: 201512
  7. DACARBAZINE [Suspect]
     Active Substance: DACARBAZINE
     Indication: Chemotherapy
     Dosage: 4 CYCLES - ABVD SCHEME
     Route: 065
  8. BENDAMUSTINE [Suspect]
     Active Substance: BENDAMUSTINE
     Indication: Chemotherapy
     Dosage: UNK
     Route: 065
     Dates: end: 201701
  9. ETOPOSIDE [Suspect]
     Active Substance: ETOPOSIDE
     Indication: Chemotherapy
     Dosage: 3 CYCLES - ICE SCHEME
     Route: 065
  10. VINORELBINE [Suspect]
     Active Substance: VINORELBINE TARTRATE
     Indication: Chemotherapy
     Dosage: 4 CYCLES - IGEV SCHEME
     Route: 065
     Dates: start: 201512
  11. BRENTUXIMAB [Suspect]
     Active Substance: BRENTUXIMAB
     Indication: Chemotherapy
     Dosage: 4 CYCLES - BB SCHEME
     Route: 065
     Dates: end: 201701
  12. CARBOPLATIN [Suspect]
     Active Substance: CARBOPLATIN
     Indication: Chemotherapy
     Dosage: 3 CYCLES - ICE SCHEME
     Route: 065

REACTIONS (1)
  - Guillain-Barre syndrome [Unknown]
